FAERS Safety Report 5519530-4 (Version None)
Quarter: 2007Q4

REPORT INFORMATION
  Report Type: 
  Country: None (occurrence: None)
  Receive Date: 20071116
  Receipt Date: 20071109
  Transmission Date: 20080405
  Serious: Yes (Disabling)
  Sender: FDA-Public Use
  Company Number: A0694819A

PATIENT
  Age: 50 Year
  Sex: Female

DRUGS (4)
  1. AVANDAMET [Suspect]
     Dosage: 1TAB PER DAY
     Route: 048
     Dates: start: 20070924, end: 20071014
  2. DIVALPROEX SODIUM [Concomitant]
  3. SERTRALINE [Concomitant]
     Dosage: 150MG IN THE MORNING
     Route: 048
  4. MIRTAZAPINE [Concomitant]
     Dosage: 15MG AS DIRECTED
     Route: 048

REACTIONS (3)
  - ANGINA PECTORIS [None]
  - DYSPNOEA [None]
  - GAIT DISTURBANCE [None]
